FAERS Safety Report 10071590 (Version 1)
Quarter: 2014Q2

REPORT INFORMATION
  Report Type: Spontaneous
  Country: KR (occurrence: KR)
  Receive Date: 20140410
  Receipt Date: 20140410
  Transmission Date: 20141212
  Serious: Yes (Other)
  Sender: FDA-Public Use
  Company Number: KR-AMGEN-KORSP2014025240

PATIENT
  Sex: Female

DRUGS (1)
  1. KRN125 [Suspect]
     Indication: NEOPLASM MALIGNANT
     Dosage: 6 MG, UNK
     Route: 058

REACTIONS (1)
  - Febrile neutropenia [Unknown]
